FAERS Safety Report 13951842 (Version 1)
Quarter: 2017Q3

REPORT INFORMATION
  Report Type: Report from Study
  Country: US (occurrence: US)
  Receive Date: 20170908
  Receipt Date: 20170908
  Transmission Date: 20171128
  Serious: Yes (Hospitalization)
  Sender: FDA-Public Use
  Company Number: US-ACTELION-A-NJ2017-148581

PATIENT
  Age: 56 Year
  Sex: Female
  Weight: 95.24 kg

DRUGS (2)
  1. TRACLEER [Suspect]
     Active Substance: BOSENTAN
     Indication: PULMONARY ARTERIAL HYPERTENSION
     Dosage: 62.5 MG, BID
     Route: 048
     Dates: start: 20120731
  2. TYVASO [Concomitant]
     Active Substance: TREPROSTINIL

REACTIONS (5)
  - Supraventricular tachycardia [Unknown]
  - Fatigue [Recovering/Resolving]
  - Pain [Unknown]
  - Tachycardia [Recovered/Resolved]
  - Respiration abnormal [Unknown]
